FAERS Safety Report 23281947 (Version 6)
Quarter: 2025Q3

REPORT INFORMATION
  Report Type: Spontaneous
  Country: JP (occurrence: JP)
  Receive Date: 20231211
  Receipt Date: 20250804
  Transmission Date: 20251020
  Serious: Yes (Death, Life-Threatening, Hospitalization, Other)
  Sender: ASTELLAS
  Company Number: JP-ASTELLAS-2023JP013544

PATIENT
  Age: 83 Year
  Sex: Male
  Weight: 80 kg

DRUGS (18)
  1. PADCEV [Suspect]
     Active Substance: ENFORTUMAB VEDOTIN-EJFV
     Indication: Transitional cell cancer of the renal pelvis and ureter
     Route: 042
     Dates: start: 20231031, end: 20231114
  2. Glactiv tablet [Concomitant]
     Indication: Product used for unknown indication
     Route: 048
  3. ZilMlo combination tablet HD [Concomitant]
     Indication: Product used for unknown indication
     Route: 048
  4. Famotidine OD Tablet [Concomitant]
     Indication: Product used for unknown indication
     Route: 048
  5. FEBUXOSTAT [Concomitant]
     Active Substance: FEBUXOSTAT
     Indication: Product used for unknown indication
     Route: 048
  6. METFORMIN HYDROCHLORIDE [Concomitant]
     Active Substance: METFORMIN HYDROCHLORIDE
     Indication: Product used for unknown indication
     Route: 065
  7. METOCLOPRAMIDE [Concomitant]
     Active Substance: METOCLOPRAMIDE
     Indication: Product used for unknown indication
     Route: 048
  8. Epinastine hydrochloride Tablet [Concomitant]
     Indication: Product used for unknown indication
     Route: 048
  9. LAC-B Tablet [Concomitant]
     Indication: Product used for unknown indication
     Route: 048
  10. Filgrastim BS Injection Syringe [Concomitant]
     Indication: Febrile neutropenia
     Route: 065
     Dates: start: 20231121
  11. PIPERACILLIN SODIUM\TAZOBACTAM SODIUM [Concomitant]
     Active Substance: PIPERACILLIN SODIUM\TAZOBACTAM SODIUM
     Indication: Febrile neutropenia
     Route: 065
     Dates: start: 20231121
  12. PIPERACILLIN SODIUM\TAZOBACTAM SODIUM [Concomitant]
     Active Substance: PIPERACILLIN SODIUM\TAZOBACTAM SODIUM
     Route: 065
  13. MEROPENEM [Concomitant]
     Active Substance: MEROPENEM
     Indication: Febrile neutropenia
     Route: 065
     Dates: start: 20231204
  14. SOLU-MEDROL [Concomitant]
     Active Substance: METHYLPREDNISOLONE SODIUM SUCCINATE
     Indication: Stevens-Johnson syndrome
     Route: 065
     Dates: start: 20231124, end: 20231126
  15. SOLU-MEDROL [Concomitant]
     Active Substance: METHYLPREDNISOLONE SODIUM SUCCINATE
     Indication: Renal tubular disorder
  16. Pandel ointment [Concomitant]
     Indication: Stevens-Johnson syndrome
     Route: 065
     Dates: start: 20231201
  17. OXYGEN [Concomitant]
     Active Substance: OXYGEN
     Indication: Product used for unknown indication
     Route: 065
     Dates: start: 20231203
  18. OXYGEN [Concomitant]
     Active Substance: OXYGEN
     Route: 065

REACTIONS (4)
  - Renal tubular disorder [Fatal]
  - Stevens-Johnson syndrome [Fatal]
  - Febrile neutropenia [Not Recovered/Not Resolved]
  - Skin disorder [Not Recovered/Not Resolved]

NARRATIVE: CASE EVENT DATE: 20231121
